FAERS Safety Report 12078078 (Version 1)
Quarter: 2016Q1

REPORT INFORMATION
  Report Type: Spontaneous
  Country: AR (occurrence: AR)
  Receive Date: 20160215
  Receipt Date: 20160215
  Transmission Date: 20160526
  Serious: Yes (Other)
  Sender: FDA-Public Use
  Company Number: AR-PFIZER INC-2016048796

PATIENT
  Age: 6 Year
  Sex: Male

DRUGS (3)
  1. HYDROCORTISON /00028601/ [Concomitant]
     Active Substance: HYDROCORTISONE
     Dosage: UNK
     Dates: start: 2013
  2. RAQUIFEROL [Concomitant]
     Dosage: UNK
     Dates: start: 2014
  3. GENOTROPIN [Suspect]
     Active Substance: SOMATROPIN
     Indication: GROWTH HORMONE DEFICIENCY
     Dosage: 0.6 TO 1 MG, 6 TIME PER WEEK
     Dates: start: 20060102

REACTIONS (1)
  - Thyroid disorder [Recovering/Resolving]

NARRATIVE: CASE EVENT DATE: 2006
